FAERS Safety Report 7875759-1 (Version None)
Quarter: 2011Q4

REPORT INFORMATION
  Report Type: 
  Country: None (occurrence: None)
  Receive Date: 20111031
  Receipt Date: 20111021
  Transmission Date: 20120403
  Serious: Yes (Hospitalization, Other)
  Sender: FDA-Public Use
  Company Number: US-ASTRAZENECA-2011SE63728

PATIENT
  Sex: Female

DRUGS (2)
  1. SEROQUEL [Suspect]
     Route: 048
     Dates: start: 20020101
  2. SEROQUEL [Suspect]
     Route: 048

REACTIONS (2)
  - VASCULITIS [None]
  - CEREBROVASCULAR ACCIDENT [None]
